FAERS Safety Report 26145365 (Version 1)
Quarter: 2025Q4

REPORT INFORMATION
  Report Type: Spontaneous
  Country: US (occurrence: None)
  Receive Date: 20251210
  Receipt Date: 20251210
  Transmission Date: 20260117
  Serious: Yes (Other)
  Sender: FDA-CTU
  Company Number: None

PATIENT
  Age: 64 Year
  Sex: Female
  Weight: 65.25 kg

DRUGS (8)
  1. INFLECTRA [Suspect]
     Active Substance: INFLIXIMAB-DYYB
  2. HYDROCHLOROTHIAZIDE\LISINOPRIL [Concomitant]
     Active Substance: HYDROCHLOROTHIAZIDE\LISINOPRIL
  3. METOPROLOL [Concomitant]
     Active Substance: METOPROLOL
  4. PANTOPRAZOLE [Concomitant]
     Active Substance: PANTOPRAZOLE
  5. EZETIMIBE [Concomitant]
     Active Substance: EZETIMIBE
  6. ATORVASTATIN [Concomitant]
     Active Substance: ATORVASTATIN
  7. FOLIC ACID [Concomitant]
     Active Substance: FOLIC ACID
  8. VITAMINS [Concomitant]
     Active Substance: VITAMINS

REACTIONS (3)
  - Rash erythematous [None]
  - Psoriasis [None]
  - Infusion related reaction [None]

NARRATIVE: CASE EVENT DATE: 20251030
